FAERS Safety Report 5351761-9 (Version None)
Quarter: 2007Q2

REPORT INFORMATION
  Report Type: 
  Country: None (occurrence: None)
  Receive Date: 20070521
  Receipt Date: 20070227
  Transmission Date: 20071010
  Serious: No
  Sender: FDA-Public Use
  Company Number: WAES 0702USA04616

PATIENT
  Age: 79 Year
  Sex: Male

DRUGS (5)
  1. JANUVIA [Suspect]
     Indication: DIABETES MELLITUS
     Dosage: 100 MG/DAILY/PO
     Route: 048
     Dates: start: 20070208
  2. DIOVAN [Concomitant]
  3. HYDRODIURIL [Concomitant]
  4. PRAVACHOL [Concomitant]
  5. THYROXIN [Concomitant]

REACTIONS (2)
  - DIARRHOEA [None]
  - HEADACHE [None]
